FAERS Safety Report 8157023-9 (Version None)
Quarter: 2012Q1

REPORT INFORMATION
  Report Type: 
  Country: None (occurrence: None)
  Receive Date: 20120222
  Receipt Date: 20120213
  Transmission Date: 20120608
  Serious: Yes (Life-Threatening, Hospitalization)
  Sender: FDA-Public Use
  Company Number: US-US-EMD SERONO, INC.-7107238

PATIENT
  Sex: Male

DRUGS (5)
  1. INSULIN [Concomitant]
     Indication: DIABETES MELLITUS
  2. PLAVIX [Concomitant]
  3. ZETIA [Concomitant]
  4. REBIF [Suspect]
     Indication: RELAPSING-REMITTING MULTIPLE SCLEROSIS
     Route: 058
     Dates: start: 20111231
  5. LOVENOX [Concomitant]

REACTIONS (8)
  - GENERAL PHYSICAL HEALTH DETERIORATION [None]
  - PNEUMONIA [None]
  - VIITH NERVE PARALYSIS [None]
  - HEART RATE IRREGULAR [None]
  - BLOOD GLUCOSE ABNORMAL [None]
  - CHILLS [None]
  - CEREBROVASCULAR ACCIDENT [None]
  - HALLUCINATION [None]
